FAERS Safety Report 5076758-8 (Version None)
Quarter: 2006Q3

REPORT INFORMATION
  Report Type: 
  Country: None (occurrence: None)
  Receive Date: 20060725
  Receipt Date: 20060419
  Transmission Date: 20061208
  Serious: Yes (Other)
  Sender: FDA-Public Use
  Company Number: 200611634BWH

PATIENT
  Age: 59 Year
  Sex: Male
  Weight: 92.4884 kg

DRUGS (12)
  1. NEXAVAR [Suspect]
     Indication: RENAL CELL CARCINOMA STAGE UNSPECIFIED
     Dosage: SEE IMAGE
     Route: 048
     Dates: start: 20060119, end: 20060201
  2. NEXAVAR [Suspect]
     Indication: RENAL CELL CARCINOMA STAGE UNSPECIFIED
     Dosage: SEE IMAGE
     Route: 048
     Dates: start: 20060202, end: 20060211
  3. NEXAVAR [Suspect]
     Indication: RENAL CELL CARCINOMA STAGE UNSPECIFIED
     Dosage: SEE IMAGE
     Route: 048
     Dates: start: 20060212, end: 20060314
  4. NEXAVAR [Suspect]
     Indication: RENAL CELL CARCINOMA STAGE UNSPECIFIED
     Dosage: SEE IMAGE
     Route: 048
     Dates: start: 20060410, end: 20060508
  5. NEXAVAR [Suspect]
     Indication: RENAL CELL CARCINOMA STAGE UNSPECIFIED
     Dosage: SEE IMAGE
     Route: 048
     Dates: start: 20060509, end: 20060606
  6. NEXIUM [Concomitant]
  7. FOLIC ACID [Concomitant]
  8. CALCIUM WITH VITAMIN D [Concomitant]
  9. B COMPLEX [B3,B6,B2,B1,HCL] [Concomitant]
  10. SELENIUM SULFIDE [Concomitant]
  11. GLUCOSAMINE [Concomitant]
  12. VITAMIN E [Concomitant]

REACTIONS (2)
  - LIVER FUNCTION TEST ABNORMAL [None]
  - RASH [None]
